FAERS Safety Report 14994454 (Version 1)
Quarter: 2018Q2

REPORT INFORMATION
  Report Type: Spontaneous
  Country: DE (occurrence: DE)
  Receive Date: 20180611
  Receipt Date: 20180611
  Transmission Date: 20180711
  Serious: Yes (Congenital Anomaly)
  Sender: FDA-Public Use
  Company Number: DE-AUROBINDO-AUR-APL-2018-030333

PATIENT
  Age: 1 Day
  Sex: Female
  Weight: 3.57 kg

DRUGS (4)
  1. MISODEL [Concomitant]
     Indication: LABOUR INDUCTION
     Dosage: 38.5. - 38.6. GESTATIONAL WEEK
     Route: 064
     Dates: start: 20171204, end: 20171205
  2. CYTOTEC [Concomitant]
     Active Substance: MISOPROSTOL
     Indication: LABOUR INDUCTION
     Dosage: 38.5. - 38.6. GESTATIONAL WEEK
     Route: 064
     Dates: start: 20171204, end: 20171205
  3. PARACETAMOL [Concomitant]
     Active Substance: ACETAMINOPHEN
     Indication: HEADACHE
     Dosage: IF REQUIRED, 2 DOSAGES PER WEEK, 18 TABLETS TOTALLY16. - 24. GESTATIONAL WEEK
     Route: 064
  4. PARACETAMOL [Suspect]
     Active Substance: ACETAMINOPHEN
     Indication: HEADACHE
     Dosage: 1000 [MG/D (BIS 500) BEI BEDARF ]/ 2X2 TABLETS TOTALLY, 38.3. - 39. GESTATIONAL WEEK
     Route: 064

REACTIONS (5)
  - Atrial septal defect [Unknown]
  - Right ventricular hypertrophy [Recovered/Resolved]
  - Tricuspid valve incompetence [Recovered/Resolved]
  - Persistent foetal circulation [Recovered/Resolved]
  - Ductus arteriosus premature closure [Recovered/Resolved]

NARRATIVE: CASE EVENT DATE: 20171215
